FAERS Safety Report 17741421 (Version 1)
Quarter: 2020Q2

REPORT INFORMATION
  Report Type: Spontaneous
  Country: NL (occurrence: NL)
  Receive Date: 20200504
  Receipt Date: 20200504
  Transmission Date: 20200714
  Serious: Yes (Other)
  Sender: FDA-Public Use
  Company Number: NL-MYLANLABS-2020M1042708

PATIENT
  Sex: Male

DRUGS (8)
  1. ABILIFY [Suspect]
     Active Substance: ARIPIPRAZOLE
     Indication: BRAIN CONTUSION
     Dosage: 15 MILLIGRAM, QD
     Route: 048
     Dates: start: 1990
  2. LIDOCAINE. [Concomitant]
     Active Substance: LIDOCAINE
     Indication: PRODUCT USED FOR UNKNOWN INDICATION
     Dosage: UNK UNK, 3 TIMES/WK
     Route: 065
  3. ABILIFY [Suspect]
     Active Substance: ARIPIPRAZOLE
     Indication: PSYCHOTIC DISORDER
     Dosage: 15 MG, QD (21JAAR 15 MG 1XDGS)
     Route: 048
     Dates: start: 19960206, end: 20170505
  4. OXAZEPAM. [Concomitant]
     Active Substance: OXAZEPAM
     Indication: PRODUCT USED FOR UNKNOWN INDICATION
     Dosage: UNK
     Route: 048
  5. SEROXAT [Concomitant]
     Active Substance: PAROXETINE HYDROCHLORIDE
     Indication: PRODUCT USED FOR UNKNOWN INDICATION
     Dosage: UNK
     Route: 048
  6. ARIPIPRAZOLE. [Suspect]
     Active Substance: ARIPIPRAZOLE
     Indication: BRAIN CONTUSION
     Dosage: 15 MG, UNK
     Route: 065
  7. ANTAGEL                            /00002901/ [Concomitant]
     Indication: PRODUCT USED FOR UNKNOWN INDICATION
     Dosage: UNK (START DATE: 6 YEARS AFTER TRAUMA)
     Route: 065
  8. MELLERETTEN                        /00034202/ [Concomitant]
     Indication: PRODUCT USED FOR UNKNOWN INDICATION
     Dosage: 30 MILLIGRAM, QD (10 MG, TID)
     Route: 048

REACTIONS (22)
  - Gait disturbance [Unknown]
  - Gamma-glutamyltransferase abnormal [Unknown]
  - Gastrointestinal sounds abnormal [Not Recovered/Not Resolved]
  - Suspiciousness [Unknown]
  - Back pain [Recovering/Resolving]
  - Renal disorder [Unknown]
  - Renal cyst [Unknown]
  - Confusional state [Not Recovered/Not Resolved]
  - Discomfort [Recovered/Resolved]
  - Liver disorder [Unknown]
  - Musculoskeletal pain [Unknown]
  - Fatigue [Unknown]
  - Renal pain [Unknown]
  - Dysstasia [Unknown]
  - Adverse event [Unknown]
  - Feeling abnormal [Unknown]
  - Restless legs syndrome [Unknown]
  - Muscle tightness [Not Recovered/Not Resolved]
  - Renal impairment [Recovering/Resolving]
  - Renal failure [Not Recovered/Not Resolved]
  - Glomerular filtration rate abnormal [Recovering/Resolving]
  - Drug ineffective for unapproved indication [Unknown]

NARRATIVE: CASE EVENT DATE: 20160505
